FAERS Safety Report 18420300 (Version 1)
Quarter: 2020Q4

REPORT INFORMATION
  Report Type: Spontaneous
  Country: US (occurrence: US)
  Receive Date: 20201023
  Receipt Date: 20201023
  Transmission Date: 20210114
  Serious: No
  Sender: FDA-Public Use
  Company Number: US-GLAXOSMITHKLINE-US2020AMR206584

PATIENT
  Sex: Female

DRUGS (1)
  1. BENLYSTA [Suspect]
     Active Substance: BELIMUMAB
     Indication: SYSTEMIC LUPUS ERYTHEMATOSUS
     Dosage: UNK
     Route: 058
     Dates: start: 202004

REACTIONS (6)
  - Feeling abnormal [Unknown]
  - Jarisch-Herxheimer reaction [Unknown]
  - Arthralgia [Unknown]
  - Drug effect less than expected [Unknown]
  - Fatigue [Unknown]
  - Butterfly rash [Unknown]
